FAERS Safety Report 25751406 (Version 3)
Quarter: 2025Q4

REPORT INFORMATION
  Report Type: Spontaneous
  Country: CA (occurrence: CA)
  Receive Date: 20250902
  Receipt Date: 20251205
  Transmission Date: 20260118
  Serious: Yes (Other)
  Sender: PFIZER
  Company Number: CA-PFIZER INC-202400231537

PATIENT
  Age: 46 Year
  Sex: Male

DRUGS (24)
  1. SOMATROPIN [Suspect]
     Active Substance: SOMATROPIN
     Indication: Growth hormone deficiency
     Dosage: 750 UG, DAILY
     Route: 058
     Dates: start: 202206
  2. SOMATROPIN [Suspect]
     Active Substance: SOMATROPIN
     Indication: Hypopituitarism
     Dosage: 3 MG, 1X/DAY
     Route: 058
     Dates: start: 20220606, end: 20220607
  3. SOMATROPIN [Suspect]
     Active Substance: SOMATROPIN
     Dosage: 900 UG, DAILY
     Route: 058
  4. SOMATROPIN [Suspect]
     Active Substance: SOMATROPIN
     Dosage: 800 UG, 7 TIMES A WEEK
     Route: 058
  5. PREDNISONE [Concomitant]
     Active Substance: PREDNISONE
     Dosage: 2 DF, DAILY (2 TABS DAILY)
  6. PREDNISONE [Concomitant]
     Active Substance: PREDNISONE
     Dosage: 5 MG, 2X/DAY,(2 TABS DAILY)
  7. ALPRAZOLAM [Concomitant]
     Active Substance: ALPRAZOLAM
     Dosage: 1-2 TAB TID PRN
  8. ALPRAZOLAM [Concomitant]
     Active Substance: ALPRAZOLAM
     Dosage: 0.5 MG, 3X/DAY(1-2 TAB TID PRN)
  9. BISOPROLOL [Concomitant]
     Active Substance: BISOPROLOL
     Dosage: 1 DF, DAILY (1 TAB DAILY)
  10. BISOPROLOL [Concomitant]
     Active Substance: BISOPROLOL
     Dosage: 10 MG,DAILY(1 TAB DAILY)
  11. CYCLOBENZAPRINE [Concomitant]
     Active Substance: CYCLOBENZAPRINE
     Dosage: 1 DF, DAILY (1 TAB DAILY)
  12. CYCLOBENZAPRINE [Concomitant]
     Active Substance: CYCLOBENZAPRINE
     Dosage: 10 MG,DAILY(1 TAB DAILY  )
  13. DESMOPRESSIN [Concomitant]
     Active Substance: DESMOPRESSIN
     Dosage: 0.2 MG/KG AT BEDTIME
  14. LENOLTEC WITH CODEINE NO 4 [Concomitant]
     Dosage: 1-2 TABS DAILY AS NEEDED
  15. ACETAMINOPHEN\OXYCODONE HYDROCHLORIDE [Concomitant]
     Active Substance: ACETAMINOPHEN\OXYCODONE HYDROCHLORIDE
     Indication: Migraine
     Dosage: UNK
  16. ACETAMINOPHEN\OXYCODONE HYDROCHLORIDE [Concomitant]
     Active Substance: ACETAMINOPHEN\OXYCODONE HYDROCHLORIDE
     Indication: Back pain
     Dosage: 5/325 MG FOR MIGRAINE OR BACK PAIN
  17. PULMICORT TURBUHALER [Concomitant]
     Active Substance: BUDESONIDE
     Dosage: 1 DF, 2X/DAY (1 AMPOULE TWICE DAILY)
  18. PILOCARPINE HYDROCHLORIDE [Concomitant]
     Active Substance: PILOCARPINE HYDROCHLORIDE
     Dosage: 5 DF, 4X/DAY (5 TABS 4 TIME S DAY)
  19. PILOCARPINE HYDROCHLORIDE [Concomitant]
     Active Substance: PILOCARPINE HYDROCHLORIDE
     Dosage: 5 MG,4X/DAY(5 TABS 4 TIME S DAY)
  20. ALBUTEROL [Concomitant]
     Active Substance: ALBUTEROL
     Dosage: 2 DF, 3X/DAY (2 PUFFS TID DIE)
  21. SYNTHROID [Concomitant]
     Active Substance: LEVOTHYROXINE SODIUM
     Dosage: 1 DF, DAILY (1 TAB DIE)
  22. SYNTHROID [Concomitant]
     Active Substance: LEVOTHYROXINE SODIUM
     Dosage: 0.3 MG,DAILY(1 TAB DIE)
  23. TESTOSTERONE [Concomitant]
     Active Substance: TESTOSTERONE
     Dosage: 600 MG, EVERY TWO WEEKS
  24. ZOPICLONE [Concomitant]
     Active Substance: ZOPICLONE
     Dosage: 7.5 MG, AS NEEDED (7.5MG TAB QHS PRN)

REACTIONS (4)
  - Weight decreased [Unknown]
  - Injection site pain [Unknown]
  - Liquid product physical issue [Unknown]
  - Skin disorder [Unknown]

NARRATIVE: CASE EVENT DATE: 20240801
